FAERS Safety Report 11040727 (Version 2)
Quarter: 2015Q2

REPORT INFORMATION
  Report Type: Spontaneous
  Country: US (occurrence: US)
  Receive Date: 20150416
  Receipt Date: 20150525
  Transmission Date: 20150821
  Serious: No
  Sender: FDA-Public Use
  Company Number: US-JNJFOC-20140923886

PATIENT
  Sex: Male
  Weight: 93.44 kg

DRUGS (2)
  1. XARELTO [Suspect]
     Active Substance: RIVAROXABAN
     Indication: CEREBROVASCULAR ACCIDENT PROPHYLAXIS
     Route: 048
     Dates: start: 2012
  2. XARELTO [Suspect]
     Active Substance: RIVAROXABAN
     Indication: ATRIAL FIBRILLATION
     Route: 048
     Dates: start: 2012

REACTIONS (7)
  - Sinusitis [Not Recovered/Not Resolved]
  - Decreased appetite [Not Recovered/Not Resolved]
  - Gastric disorder [Not Recovered/Not Resolved]
  - Ageusia [Not Recovered/Not Resolved]
  - Confusional state [Not Recovered/Not Resolved]
  - Corrective lens user [Not Recovered/Not Resolved]
  - Throat irritation [Not Recovered/Not Resolved]

NARRATIVE: CASE EVENT DATE: 2012
